FAERS Safety Report 22233480 (Version 1)
Quarter: 2023Q2

REPORT INFORMATION
  Report Type: Spontaneous
  Country: US (occurrence: None)
  Receive Date: 20230420
  Receipt Date: 20230420
  Transmission Date: 20230721
  Serious: No
  Sender: FDA-Public Use
  Company Number: US-ROCHE-3103346

PATIENT
  Sex: Male

DRUGS (1)
  1. ESBRIET [Suspect]
     Active Substance: PIRFENIDONE
     Indication: Interstitial lung disease
     Dosage: TAKE 1 CAP BY MOUTH THREE TIMES A DAY FOR 7 DAYS, THEN 2 CAP 3 TIMES A DAY FOR 7 DAYS, THEN 3 CAP 3
     Route: 048

REACTIONS (4)
  - Insomnia [Unknown]
  - Weight decreased [Unknown]
  - Nausea [Unknown]
  - Abdominal discomfort [Unknown]
